FAERS Safety Report 21736060 (Version 1)
Quarter: 2022Q4

REPORT INFORMATION
  Report Type: Spontaneous
  Country: US (occurrence: US)
  Receive Date: 20221215
  Receipt Date: 20221215
  Transmission Date: 20230113
  Serious: No
  Sender: FDA-Public Use
  Company Number: US-NOVOPROD-942366

PATIENT
  Sex: Female

DRUGS (2)
  1. LEVEMIR [Suspect]
     Active Substance: INSULIN DETEMIR
     Indication: Type 2 diabetes mellitus
     Dosage: 10 UNITS, 20, UNITS, 25 UNITS IN THE MORNING AND 18 UNITS IN THE EVENING
     Route: 058
  2. VICTOZA [Concomitant]
     Active Substance: LIRAGLUTIDE
     Indication: Type 2 diabetes mellitus
     Route: 058

REACTIONS (4)
  - Dysuria [Recovered/Resolved]
  - Genital rash [Recovered/Resolved]
  - Varicose vein [Recovered/Resolved]
  - Blood glucose increased [Recovered/Resolved]
